FAERS Safety Report 4470979-0 (Version None)
Quarter: 2004Q4

REPORT INFORMATION
  Report Type: 
  Country: None (occurrence: None)
  Receive Date: 20041011
  Receipt Date: 20040930
  Transmission Date: 20050328
  Serious: Yes (Other)
  Sender: FDA-Public Use
  Company Number: JP-ABBOTT-04P-087-0275401-00

PATIENT
  Age: 64 Year
  Sex: Female
  Weight: 41 kg

DRUGS (9)
  1. SEVOFLURANE [Suspect]
     Indication: ANAESTHESIA
     Dosage: 1-2%
     Route: 055
  2. PROPOFOL [Concomitant]
     Indication: ANAESTHESIA
     Route: 042
  3. NITROUS OXIDE [Concomitant]
     Indication: ANAESTHESIA
     Route: 055
  4. VECURONIUM BROMIDE [Concomitant]
     Indication: ANAESTHESIA
     Route: 042
  5. ATROPINE SULFATE [Concomitant]
     Indication: DRUG USE FOR UNKNOWN INDICATION
     Route: 042
  6. ATROPINE SULFATE [Concomitant]
     Indication: ANAESTHESIA REVERSAL
  7. NEOSTIGMINE METILSULFATE [Concomitant]
     Indication: NEUROMUSCULAR BLOCKADE REVERSAL
     Route: 042
  8. OXYGEN [Concomitant]
     Indication: MAINTENANCE OF ANAESTHESIA
     Route: 055
  9. FENTANYL [Concomitant]
     Indication: INDUCTION OF ANAESTHESIA
     Dosage: NOT REPORTED
     Route: 065

REACTIONS (5)
  - BRADYCARDIA [None]
  - DELAYED RECOVERY FROM ANAESTHESIA [None]
  - EXTENSOR PLANTAR RESPONSE [None]
  - HOFFMANN'S SIGN [None]
  - HYPERREFLEXIA [None]
